FAERS Safety Report 13099847 (Version 1)
Quarter: 2017Q1

REPORT INFORMATION
  Report Type: Spontaneous
  Country: US (occurrence: US)
  Receive Date: 20170110
  Receipt Date: 20170110
  Transmission Date: 20170428
  Serious: Yes (Other)
  Sender: FDA-Public Use
  Company Number: US-JNJCP-30000366400

PATIENT
  Age: 16 Year
  Sex: Female
  Weight: 54 kg

DRUGS (1)
  1. JOHNSONS PRODUCTS [Suspect]
     Active Substance: UNSPECIFIED INGREDIENT
     Indication: SKIN ABRASION
     Dosage: ONE TO TWO TABLESPOONS, THREE TO FOUR TIMES DAILY
     Route: 061
     Dates: start: 19960701

REACTIONS (1)
  - Premature menopause [Not Recovered/Not Resolved]
